FAERS Safety Report 25210633 (Version 1)
Quarter: 2025Q2

REPORT INFORMATION
  Report Type: Spontaneous
  Country: US (occurrence: US)
  Receive Date: 20250417
  Receipt Date: 20250417
  Transmission Date: 20250716
  Serious: No
  Sender: PFIZER
  Company Number: US-PFIZER INC-202400215318

PATIENT
  Age: 58 Year
  Sex: Female

DRUGS (1)
  1. VELSIPITY [Suspect]
     Active Substance: ETRASIMOD ARGININE
     Indication: Proctitis ulcerative
     Dosage: 2 MG, 1X/DAY (2 MG 1 P.O. A.M)
     Route: 048

REACTIONS (3)
  - Inflammation [Unknown]
  - Bradycardia [Unknown]
  - Vision blurred [Unknown]
